FAERS Safety Report 6233404-5 (Version None)
Quarter: 2009Q2

REPORT INFORMATION
  Report Type: 
  Country: None (occurrence: None)
  Receive Date: 20090612
  Receipt Date: 20090604
  Transmission Date: 20091009
  Serious: Yes (Hospitalization, Other)
  Sender: FDA-Public Use
  Company Number: 2009US001899

PATIENT
  Age: 55 Year
  Sex: Male

DRUGS (5)
  1. PROGRAF [Suspect]
     Indication: LIVER TRANSPLANT
     Dosage: 1 MG, BID
  2. METOPROLOL SUCCINATE [Concomitant]
  3. VITAMIN K (VITAMIN K NOS) [Concomitant]
  4. ALBUTEROL (SALBUTAMOL SULFATE) [Concomitant]
  5. INSULIN (INSULIN) [Concomitant]

REACTIONS (2)
  - INTESTINAL OBSTRUCTION [None]
  - PANCYTOPENIA [None]
